FAERS Safety Report 21460557 (Version 1)
Quarter: 2022Q4

REPORT INFORMATION
  Report Type: Spontaneous
  Country: US (occurrence: US)
  Receive Date: 20221015
  Receipt Date: 20221015
  Transmission Date: 20230112
  Serious: No
  Sender: FDA-Public Use
  Company Number: US-PADAGIS-2022PAD00754

PATIENT

DRUGS (1)
  1. MUPIROCIN [Suspect]
     Active Substance: MUPIROCIN
     Indication: Skin lesion
     Dosage: UNK
     Route: 065

REACTIONS (2)
  - Therapy partial responder [Unknown]
  - Product use in unapproved indication [Unknown]

NARRATIVE: CASE EVENT DATE: 20220919
